FAERS Safety Report 17517583 (Version 1)
Quarter: 2020Q1

REPORT INFORMATION
  Report Type: Spontaneous
  Country: CZ (occurrence: CZ)
  Receive Date: 20200309
  Receipt Date: 20200309
  Transmission Date: 20200409
  Serious: Yes (Other)
  Sender: FDA-Public Use
  Company Number: CZ-MYLANLABS-2020M1023913

PATIENT
  Sex: Female

DRUGS (12)
  1. GABAPENTIN. [Suspect]
     Active Substance: GABAPENTIN
     Indication: PRODUCT USED FOR UNKNOWN INDICATION
     Dosage: UNK
  2. DETRALEX [Concomitant]
     Active Substance: DIOSMIN\HESPERIDIN
     Indication: DYSPNOEA
     Dosage: UNK
  3. RISMYL                             /01026402/ [Concomitant]
     Indication: DYSPNOEA
     Dosage: UNK
  4. LANZUL [Concomitant]
     Active Substance: LANSOPRAZOLE
     Indication: DYSPNOEA
     Dosage: UNK
  5. PREGABALIN. [Suspect]
     Active Substance: PREGABALIN
     Indication: POST HERPETIC NEURALGIA
     Dosage: 50 MILLIGRAM
  6. OXAZEPAM. [Concomitant]
     Active Substance: OXAZEPAM
     Indication: DYSPNOEA
     Dosage: UNK
  7. VENTOLIN [Concomitant]
     Active Substance: ALBUTEROL SULFATE
     Indication: DYSPNOEA
     Dosage: UNK
  8. PROPANORM [Concomitant]
     Active Substance: PROPAFENONE
     Indication: DYSPNOEA
     Dosage: UNK
  9. ROSUCARD [Concomitant]
     Active Substance: ROSUVASTATIN CALCIUM
     Indication: DYSPNOEA
     Dosage: UNK
  10. STILNOX [Concomitant]
     Active Substance: ZOLPIDEM TARTRATE
     Indication: DYSPNOEA
     Dosage: UNK
  11. XYZAL [Concomitant]
     Active Substance: LEVOCETIRIZINE DIHYDROCHLORIDE
     Indication: DYSPNOEA
     Dosage: UNK
  12. PRESTARIUM                         /00790701/ [Concomitant]
     Active Substance: PERINDOPRIL
     Indication: DYSPNOEA
     Dosage: UNK

REACTIONS (6)
  - Memory impairment [Recovered/Resolved]
  - Seizure [Recovered/Resolved]
  - Alopecia [Not Recovered/Not Resolved]
  - Tremor [Recovered/Resolved]
  - Constipation [Recovered/Resolved]
  - Arthralgia [Recovered/Resolved]
